FAERS Safety Report 6022737-3 (Version None)
Quarter: 2008Q4

REPORT INFORMATION
  Report Type: 
  Country: None (occurrence: None)
  Receive Date: 20081221
  Receipt Date: 20081221
  Transmission Date: 20090506
  Serious: Yes (Death)
  Sender: FDA-Public Use
  Company Number: None

PATIENT
  Age: 62 Year
  Sex: Male
  Weight: 65 kg

DRUGS (3)
  1. FLUOXETINE [Suspect]
     Indication: ANXIETY
     Dosage: 20 MG ONCE A DAY PO
     Route: 048
     Dates: start: 20080325, end: 20080401
  2. FLUOXETINE [Suspect]
     Indication: INSOMNIA
     Dosage: 20 MG ONCE A DAY PO
     Route: 048
     Dates: start: 20080325, end: 20080401
  3. CLONAZEPAM [Suspect]
     Dosage: 0,5 MG TWICE A DAY PO
     Route: 048
     Dates: start: 20080325, end: 20080401

REACTIONS (3)
  - ANXIETY [None]
  - COMPLETED SUICIDE [None]
  - CONDITION AGGRAVATED [None]
